FAERS Safety Report 8422744-7 (Version None)
Quarter: 2012Q2

REPORT INFORMATION
  Report Type: 
  Country: None (occurrence: None)
  Receive Date: 20120323
  Receipt Date: 20110920
  Transmission Date: 20120825
  Serious: Yes (Hospitalization)
  Sender: FDA-Public Use
  Company Number: 163-21880-11092608

PATIENT
  Age: 73 Year
  Sex: Female
  Weight: 60 kg

DRUGS (13)
  1. LENALIDOMIDE [Suspect]
     Indication: MULTIPLE MYELOMA
     Dosage: 25 MG, DAILY, PO
     Route: 048
  2. ALLOPURINOL [Concomitant]
  3. ACETAMINOPHEN [Concomitant]
  4. DIPHENHYDRAMINE HCL [Concomitant]
  5. LORATADINE [Concomitant]
  6. AMLODIPINE [Concomitant]
  7. HYDROCODONE BITARTRATE [Concomitant]
  8. DEXAMETHASONE [Suspect]
     Indication: MULTIPLE MYELOMA
     Dosage: 4 MG, ONCE A WEEK, 10 MG, Q 6HRS, IV, 4 MG, Q 6HRS, IV
     Route: 042
  9. MIRTAZAPINE [Concomitant]
  10. PREDNISONE TAB [Concomitant]
  11. RANITIDINE HYDROCHLORIDE [Concomitant]
  12. METOPROLOL SUCCINATE [Concomitant]
  13. HEPARIN [Concomitant]

REACTIONS (1)
  - STEVENS-JOHNSON SYNDROME [None]
